FAERS Safety Report 13334003 (Version 1)
Quarter: 2017Q1

REPORT INFORMATION
  Report Type: Spontaneous
  Country: US (occurrence: US)
  Receive Date: 20170314
  Receipt Date: 20170314
  Transmission Date: 20170428
  Serious: Yes (Hospitalization)
  Sender: FDA-Public Use
  Company Number: US-BEH-2017078736

PATIENT
  Age: 17 Year
  Sex: Female

DRUGS (2)
  1. STIMATE [Suspect]
     Active Substance: DESMOPRESSIN ACETATE
     Indication: HAEMORRHAGE
     Dosage: 1 SPRAY INTO 1 NOSTRIL PRN
     Route: 045
     Dates: start: 20140902
  2. STIMATE [Suspect]
     Active Substance: DESMOPRESSIN ACETATE
     Indication: VON WILLEBRAND^S DISEASE
     Dosage: 1 SPRAY INTO 1 NOSTRIL DAILY
     Route: 045
     Dates: start: 20140902

REACTIONS (1)
  - Vaginal haemorrhage [Unknown]
